FAERS Safety Report 10237209 (Version 1)
Quarter: 2014Q1

REPORT INFORMATION
  Report Type: Spontaneous
  Country: US (occurrence: None)
  Receive Date: 20140306
  Receipt Date: 20140306
  Transmission Date: 20141002
  Serious: Yes (Other)
  Sender: FDA-Public Use
  Company Number: 163-21880-13103670

PATIENT
  Age: 57 Year
  Sex: Male
  Weight: 93.4 kg

DRUGS (5)
  1. REVLIMID [Suspect]
     Indication: PLASMA CELL MYELOMA
     Dosage: 10 MG, 21 IN 28 D, PO
     Route: 048
     Dates: start: 20120326
  2. CALCIUM [Concomitant]
  3. VITAMIN D (ERGOCALCIFEROL) [Concomitant]
  4. POTASSIUM CHLORIDE [Concomitant]
  5. MELOXICAM [Concomitant]

REACTIONS (2)
  - Platelet count decreased [None]
  - White blood cell count decreased [None]
